FAERS Safety Report 7125106-8 (Version None)
Quarter: 2010Q4

REPORT INFORMATION
  Report Type: 
  Country: None (occurrence: None)
  Receive Date: 20101129
  Receipt Date: 20101019
  Transmission Date: 20110411
  Serious: Yes (Hospitalization)
  Sender: FDA-Public Use
  Company Number: CA-AMGEN-KDL437477

PATIENT

DRUGS (1)
  1. ENBREL [Suspect]
     Indication: RHEUMATOID ARTHRITIS
     Dosage: UNK UNK, QWK
     Dates: start: 20100617, end: 20100719

REACTIONS (7)
  - ABSCESS [None]
  - LOBAR PNEUMONIA [None]
  - PYREXIA [None]
  - SPINAL COMPRESSION FRACTURE [None]
  - STAPHYLOCOCCAL SEPSIS [None]
  - STATUS EPILEPTICUS [None]
  - STERNAL FRACTURE [None]
